FAERS Safety Report 21246637 (Version 1)
Quarter: 2022Q3

REPORT INFORMATION
  Report Type: Spontaneous
  Country: US (occurrence: US)
  Receive Date: 20220824
  Receipt Date: 20220824
  Transmission Date: 20221027
  Serious: Yes (Other)
  Sender: FDA-Public Use
  Company Number: US-PFIZER INC-202201083322

PATIENT
  Sex: Female

DRUGS (1)
  1. DEMEROL [Suspect]
     Active Substance: MEPERIDINE HYDROCHLORIDE
     Dosage: UNK

REACTIONS (7)
  - Brain neoplasm [Unknown]
  - Seizure [Unknown]
  - Sarcoidosis [Unknown]
  - Mass excision [Unknown]
  - Breast operation [Unknown]
  - Ear operation [Unknown]
  - Blindness [Unknown]
